FAERS Safety Report 10411822 (Version 1)
Quarter: 2014Q3

REPORT INFORMATION
  Report Type: Spontaneous
  Country: CO (occurrence: CO)
  Receive Date: 20140827
  Receipt Date: 20140827
  Transmission Date: 20150326
  Serious: Yes (Death)
  Sender: FDA-Public Use
  Company Number: CO-AMGEN-COLSP2014064419

PATIENT
  Age: 71 Year
  Sex: Male

DRUGS (1)
  1. VECTIBIX [Suspect]
     Active Substance: PANITUMUMAB
     Indication: COLORECTAL CANCER
     Dosage: UNK, EVERY 15 DAYS
     Route: 042
     Dates: start: 20140804, end: 20140804

REACTIONS (1)
  - Death [Fatal]

NARRATIVE: CASE EVENT DATE: 20140817
